FAERS Safety Report 19365682 (Version 4)
Quarter: 2024Q2

REPORT INFORMATION
  Report Type: Spontaneous
  Country: US (occurrence: US)
  Receive Date: 20210602
  Receipt Date: 20240403
  Transmission Date: 20240716
  Serious: Yes (Other)
  Sender: FDA-Public Use
  Company Number: US-PFIZER INC-2020477482

PATIENT
  Age: 71 Year
  Sex: Female
  Weight: 110.22 kg

DRUGS (2)
  1. XELJANZ XR [Suspect]
     Active Substance: TOFACITINIB CITRATE
     Indication: Rheumatoid arthritis
     Dosage: 11 MG, 1X/DAY
  2. PREDNISONE [Concomitant]
     Active Substance: PREDNISONE
     Indication: Rheumatoid arthritis
     Dosage: 5 MG, 2X/DAY (10MG TOTAL, 5MG IN THE MORNING AND 5MG AT NIGHT)

REACTIONS (11)
  - Pulmonary thrombosis [Unknown]
  - Therapeutic product effect incomplete [Unknown]
  - Condition aggravated [Unknown]
  - Loss of personal independence in daily activities [Unknown]
  - Movement disorder [Unknown]
  - Pain [Not Recovered/Not Resolved]
  - Impaired quality of life [Unknown]
  - Peripheral swelling [Unknown]
  - Malaise [Unknown]
  - Pain in extremity [Unknown]
  - Confusional state [Unknown]
